FAERS Safety Report 19315819 (Version 2)
Quarter: 2021Q2

REPORT INFORMATION
  Report Type: Report from Study
  Country: PL (occurrence: PL)
  Receive Date: 20210527
  Receipt Date: 20210624
  Transmission Date: 20210717
  Serious: Yes (Hospitalization, Other)
  Sender: FDA-Public Use
  Company Number: PL-JNJFOC-20210500699

PATIENT
  Age: 42 Year
  Sex: Female
  Weight: 78 kg

DRUGS (3)
  1. ASAMAX [Concomitant]
     Active Substance: MESALAMINE
     Dates: start: 2011
  2. GUSELKUMAB [Suspect]
     Active Substance: GUSELKUMAB
     Indication: COLITIS ULCERATIVE
     Route: 058
     Dates: start: 20200827, end: 20210415
  3. GUSELKUMAB [Suspect]
     Active Substance: GUSELKUMAB

REACTIONS (2)
  - Abdominal pain [Recovering/Resolving]
  - Rectal adenocarcinoma [Recovering/Resolving]

NARRATIVE: CASE EVENT DATE: 20210430
